FAERS Safety Report 10996925 (Version 1)
Quarter: 2015Q2

REPORT INFORMATION
  Report Type: Spontaneous
  Country: US (occurrence: None)
  Receive Date: 20150407
  Receipt Date: 20150407
  Transmission Date: 20150821
  Serious: No
  Sender: FDA-Public Use
  Company Number: None

PATIENT
  Age: 56 Year
  Sex: Female
  Weight: 71.67 kg

DRUGS (1)
  1. METHYLPHENIDATE TAB ER [Suspect]
     Active Substance: METHYLPHENIDATE
     Indication: NARCOLEPSY
     Route: 048
     Dates: start: 20150329, end: 20150406

REACTIONS (3)
  - Drug ineffective [None]
  - Product substitution issue [None]
  - Product quality issue [None]

NARRATIVE: CASE EVENT DATE: 20150406
